FAERS Safety Report 24266460 (Version 3)
Quarter: 2024Q4

REPORT INFORMATION
  Report Type: Report from Study
  Country: US (occurrence: US)
  Receive Date: 20240830
  Receipt Date: 20241223
  Transmission Date: 20250115
  Serious: Yes (Hospitalization, Other)
  Sender: SUNOVION
  Company Number: US-SUMITOMO PHARMA SWITZERLAND GMBH-2024SPA001685

PATIENT

DRUGS (4)
  1. ORGOVYX [Suspect]
     Active Substance: RELUGOLIX
     Indication: Prostate cancer
     Dosage: 360 MG
     Route: 048
     Dates: start: 20230526, end: 20230526
  2. ORGOVYX [Suspect]
     Active Substance: RELUGOLIX
     Dosage: 120 MG, QD
     Route: 048
     Dates: start: 20230527
  3. NORVASC [Suspect]
     Active Substance: AMLODIPINE BESYLATE
     Route: 065
  4. ABIRATERONE [Suspect]
     Active Substance: ABIRATERONE\ABIRATERONE ACETATE
     Route: 065

REACTIONS (5)
  - Chest pain [Unknown]
  - Myocardial infarction [Unknown]
  - Prostatic specific antigen increased [Unknown]
  - Memory impairment [Unknown]
  - Product dose omission in error [Unknown]
